FAERS Safety Report 21695889 (Version 1)
Quarter: 2022Q4

REPORT INFORMATION
  Report Type: Spontaneous
  Country: US (occurrence: None)
  Receive Date: 20221206
  Receipt Date: 20221206
  Transmission Date: 20230113
  Serious: Yes (Other)
  Sender: FDA-Public Use
  Company Number: None

PATIENT
  Sex: Female

DRUGS (5)
  1. ESTRADIOL [Suspect]
     Active Substance: ESTRADIOL
     Indication: Infertility female
     Route: 048
     Dates: start: 20220506
  2. DIAZEPAM [Concomitant]
     Active Substance: DIAZEPAM
  3. LEUPROLIDE [Concomitant]
     Active Substance: LEUPROLIDE
  4. METHYLPREDNISOLONE [Concomitant]
     Active Substance: METHYLPREDNISOLONE
  5. PROGESTERONE [Concomitant]
     Active Substance: PROGESTERONE

REACTIONS (2)
  - Pregnancy [None]
  - Maternal exposure during pregnancy [None]
